FAERS Safety Report 4389535-8 (Version None)
Quarter: 2004Q2

REPORT INFORMATION
  Report Type: 
  Country: None (occurrence: None)
  Receive Date: 20040628
  Receipt Date: 20040608
  Transmission Date: 20050107
  Serious: Yes (Other)
  Sender: FDA-Public Use
  Company Number: M2004-0686

PATIENT

DRUGS (1)
  1. RIMACTANE [Suspect]

REACTIONS (3)
  - ADRENOCORTICAL INSUFFICIENCY ACUTE [None]
  - ADRENOMEGALY [None]
  - CALCINOSIS [None]
